FAERS Safety Report 25166271 (Version 1)
Quarter: 2025Q2

REPORT INFORMATION
  Report Type: Report from Study
  Country: US (occurrence: US)
  Receive Date: 20250407
  Receipt Date: 20250407
  Transmission Date: 20250717
  Serious: Yes (Hospitalization)
  Sender: ULTRAGENYX PHARMACEUTICAL
  Company Number: US-ULTRAGENYX PHARMACEUTICAL INC.-US-UGX-24-00393

PATIENT
  Sex: Male

DRUGS (2)
  1. DOJOLVI [Suspect]
     Active Substance: TRIHEPTANOIN
     Indication: Fatty acid oxidation disorder
     Dosage: 25 MILLILITER, QID
     Route: 048
     Dates: start: 20200807
  2. DOJOLVI [Suspect]
     Active Substance: TRIHEPTANOIN
     Dosage: 25 MILLILITER, QID
     Route: 048
     Dates: start: 20230129

REACTIONS (2)
  - Vomiting [Unknown]
  - Ammonia increased [Unknown]
